FAERS Safety Report 7311463-6 (Version None)
Quarter: 2011Q1

REPORT INFORMATION
  Report Type: 
  Country: None (occurrence: None)
  Receive Date: 20110224
  Receipt Date: 20110214
  Transmission Date: 20110831
  Serious: Yes (Death)
  Sender: FDA-Public Use
  Company Number: JP-GENZYME-CERZ-1001855

PATIENT

DRUGS (5)
  1. PHENOBARBITAL TAB [Concomitant]
     Indication: GAUCHER'S DISEASE
     Dosage: 40 MG, 2X/Q24HR
     Route: 065
     Dates: start: 20080517, end: 20110204
  2. TOPIRAMATE [Concomitant]
     Indication: GAUCHER'S DISEASE
     Dosage: 25 MG, 2X/Q24HR
     Route: 065
     Dates: start: 20100117, end: 20110204
  3. ANTIEPILEPTICS [Concomitant]
     Indication: GAUCHER'S DISEASE
     Dosage: 250 MG, 2X/Q24HR
     Route: 065
     Dates: start: 20100118, end: 20110204
  4. CEREZYME [Suspect]
     Indication: GAUCHER'S DISEASE
     Dosage: 60 U/KG, Q2W
     Route: 042
     Dates: start: 20080503, end: 20110131
  5. PIRACETAM [Concomitant]
     Indication: GAUCHER'S DISEASE
     Dosage: 5 ML, TID
     Route: 065
     Dates: start: 20090122, end: 20110204

REACTIONS (2)
  - MYOCLONUS [None]
  - ACUTE RESPIRATORY FAILURE [None]
